FAERS Safety Report 7020631-2 (Version None)
Quarter: 2010Q3

REPORT INFORMATION
  Report Type: 
  Country: None (occurrence: None)
  Receive Date: 20100929
  Receipt Date: 20100922
  Transmission Date: 20110219
  Serious: Yes (Death)
  Sender: FDA-Public Use
  Company Number: B0661472A

PATIENT
  Sex: Male
  Weight: 38 kg

DRUGS (7)
  1. LAMICTAL [Suspect]
     Indication: PARTIAL SEIZURES
     Dosage: 5MG PER DAY
     Route: 048
     Dates: start: 20100407, end: 20100414
  2. LAMICTAL [Suspect]
     Dosage: 20MG PER DAY
     Route: 048
     Dates: start: 20100415, end: 20100428
  3. LAMICTAL [Suspect]
     Dosage: 30MG PER DAY
     Route: 048
     Dates: start: 20100429, end: 20100505
  4. LAMICTAL [Suspect]
     Dosage: 40MG PER DAY
     Route: 048
     Dates: start: 20100506, end: 20100512
  5. LAMICTAL [Suspect]
     Dosage: 50MG PER DAY
     Route: 048
     Dates: start: 20100513, end: 20100519
  6. LAMICTAL [Suspect]
     Dosage: 60MG PER DAY
     Route: 048
     Dates: start: 20100520
  7. DEPAKENE [Concomitant]
     Indication: PARTIAL SEIZURES
     Dosage: 600MG PER DAY
     Route: 048
     Dates: start: 20091104, end: 20100522

REACTIONS (1)
  - CARDIO-RESPIRATORY ARREST [None]
